FAERS Safety Report 15125726 (Version 1)
Quarter: 2018Q3

REPORT INFORMATION
  Report Type: Spontaneous
  Country: US (occurrence: US)
  Receive Date: 20180614
  Receipt Date: 20180614
  Transmission Date: 20181010
  Serious: Yes (Disabling, Other)
  Sender: FDA-Public Use
  Company Number: None

PATIENT
  Age: 77 Year
  Sex: Female
  Weight: 75.6 kg

DRUGS (8)
  1. LEVOTHYROXIN [Concomitant]
     Active Substance: LEVOTHYROXINE
  2. AMBIEN [Concomitant]
     Active Substance: ZOLPIDEM TARTRATE
  3. VIT [Concomitant]
  4. VITAMIN D [Concomitant]
     Active Substance: CHOLECALCIFEROL
  5. GABAPENTIN, GENERIC FOR NEURONTIN [Suspect]
     Active Substance: GABAPENTIN
     Indication: DEPRESSION
     Dosage: ?          QUANTITY:2 CAPSULE(S);?
     Route: 048
     Dates: start: 20180430, end: 20180521
  6. GABAPENTIN GENERIC FOR NEURONTIN [Suspect]
     Active Substance: GABAPENTIN
     Indication: DEPRESSION
     Dosage: ?          QUANTITY:2 CAPSULE(S);OTHER ROUTE:MOUTH?
     Dates: start: 20010605, end: 20180609
  7. IBP [Concomitant]
     Active Substance: IBUPROFEN
  8. BYSTALIC [Concomitant]

REACTIONS (2)
  - Dizziness [None]
  - Asthenia [None]

NARRATIVE: CASE EVENT DATE: 20180521
